FAERS Safety Report 6981814-0 (Version None)
Quarter: 2010Q3

REPORT INFORMATION
  Report Type: 
  Country: None (occurrence: None)
  Receive Date: 20100914
  Receipt Date: 20091123
  Transmission Date: 20110219
  Serious: Yes (Other)
  Sender: FDA-Public Use
  Company Number: US-PFIZER INC-2009251853

PATIENT
  Sex: Female
  Weight: 90.703 kg

DRUGS (6)
  1. LYRICA [Suspect]
     Indication: MUSCLE SPASMS
     Dosage: 75 MG, 2X/DAY
     Route: 048
     Dates: start: 20081124
  2. LYRICA [Suspect]
     Indication: NEURALGIA
  3. PREMARIN [Concomitant]
     Dosage: UNK
  4. AMLODIPINE BESYLATE/VALSARTAN [Concomitant]
     Dosage: UNK
  5. VYTORIN [Concomitant]
  6. PROMETRIUM [Concomitant]
     Dosage: UNK

REACTIONS (11)
  - AMNESIA [None]
  - ANXIETY [None]
  - BLOOD GLUCOSE INCREASED [None]
  - CONFUSIONAL STATE [None]
  - FEAR [None]
  - FEELING ABNORMAL [None]
  - GAIT DISTURBANCE [None]
  - HOT FLUSH [None]
  - HYPERHIDROSIS [None]
  - PRESYNCOPE [None]
  - TREMOR [None]
